FAERS Safety Report 8068378-8 (Version None)
Quarter: 2012Q1

REPORT INFORMATION
  Report Type: 
  Country: None (occurrence: None)
  Receive Date: 20120124
  Receipt Date: 20111019
  Transmission Date: 20120608
  Serious: No
  Sender: FDA-Public Use
  Company Number: US-AMGEN-USASP2011054102

PATIENT
  Age: 84 Year
  Sex: Female

DRUGS (5)
  1. SYNTHROID [Concomitant]
     Dosage: UNK
  2. CALCIUM + VITAMIN D [Concomitant]
     Dosage: UNK
  3. PROLIA [Suspect]
     Indication: OSTEOPOROSIS POSTMENOPAUSAL
     Dosage: 60 MG, Q6MO
     Dates: start: 20110822
  4. MULTI-VITAMINS [Concomitant]
     Dosage: UNK
  5. PRILOSEC [Concomitant]
     Dosage: UNK

REACTIONS (4)
  - MUSCULOSKELETAL CHEST PAIN [None]
  - INFLUENZA LIKE ILLNESS [None]
  - DIARRHOEA [None]
  - ASTHENIA [None]
